FAERS Safety Report 9390690 (Version 1)
Quarter: 2013Q3

REPORT INFORMATION
  Report Type: Spontaneous
  Country: US (occurrence: None)
  Receive Date: 20130705
  Receipt Date: 20130705
  Transmission Date: 20140515
  Serious: Yes (Death)
  Sender: FDA-Public Use
  Company Number: None

PATIENT
  Age: 57 Year
  Sex: Male
  Weight: 57.15 kg

DRUGS (14)
  1. BENDAMUSTIN [Suspect]
     Indication: PLASMA CELL MYELOMA
     Dosage: 44 MG DAY 1+8 21 DAYCYCLE IV DRIP
     Dates: start: 20120904, end: 20120925
  2. BORTEZOMIB [Suspect]
     Indication: PLASMA CELL MYELOMA
     Dosage: 2.3 MG DAY 1+8, 21 DAYCYCLE IV
     Route: 042
     Dates: start: 20120904, end: 20120925
  3. LENALIDOMIDE [Concomitant]
     Indication: PLASMA CELL MYELOMA
     Dates: start: 20120904, end: 20121001
  4. OSCAL [Concomitant]
  5. PSYLLIUM [Concomitant]
  6. THERA TEARS [Concomitant]
  7. TRAMADOL [Concomitant]
  8. DIPHENHYDRAMINE [Concomitant]
  9. INSULIN GLARGINE [Concomitant]
  10. INSULIN LISPRO [Concomitant]
  11. ACETAMINOPHEN [Concomitant]
  12. ALPRAZOLAM [Concomitant]
  13. AMITRIPTYLINE [Concomitant]
  14. BENZONALATE [Concomitant]

REACTIONS (2)
  - Disease progression [None]
  - Plasma cell myeloma [None]
